FAERS Safety Report 17994595 (Version 1)
Quarter: 2020Q3

REPORT INFORMATION
  Report Type: Spontaneous
  Country: US (occurrence: US)
  Receive Date: 20200708
  Receipt Date: 20200708
  Transmission Date: 20201103
  Serious: Yes (Life-Threatening, Disabling, Other)
  Sender: FDA-Public Use
  Company Number: None

PATIENT
  Sex: Male
  Weight: 94.5 kg

DRUGS (3)
  1. ADVIL [Concomitant]
     Active Substance: IBUPROFEN
  2. METFORMIN HCL 500 MG [Suspect]
     Active Substance: METFORMIN HYDROCHLORIDE
     Indication: DIABETES MELLITUS
     Dosage: ?          QUANTITY:1 TABLET(S);?
     Route: 048
     Dates: start: 20200525, end: 20200701
  3. TYLENOL [Concomitant]
     Active Substance: ACETAMINOPHEN

REACTIONS (11)
  - Ageusia [None]
  - Mouth swelling [None]
  - Dry mouth [None]
  - Pain [None]
  - Recalled product administered [None]
  - Dizziness [None]
  - Hypoaesthesia oral [None]
  - Facial paralysis [None]
  - Asthenia [None]
  - Mood swings [None]
  - Emotional distress [None]
